FAERS Safety Report 7709555-2 (Version None)
Quarter: 2011Q3

REPORT INFORMATION
  Report Type: 
  Country: None (occurrence: None)
  Receive Date: 20110825
  Receipt Date: 20110817
  Transmission Date: 20111222
  Serious: Yes (Other)
  Sender: FDA-Public Use
  Company Number: ES-JNJFOC-20090709999

PATIENT
  Sex: Female
  Weight: 60 kg

DRUGS (5)
  1. STEROIDS NOS [Concomitant]
  2. REMICADE [Suspect]
     Indication: BEHCET'S SYNDROME
     Dosage: DOSE REPORTED AS ^5^
     Route: 042
     Dates: start: 20040319, end: 20040401
  3. OPIOIDS [Concomitant]
  4. ANTIDIABETICS [Concomitant]
     Route: 048
  5. REMICADE [Suspect]
     Route: 042
     Dates: start: 20051006, end: 20060111

REACTIONS (2)
  - PULMONARY TUBERCULOSIS [None]
  - PNEUMONIA [None]
